FAERS Safety Report 7300177 (Version 2)
Quarter: 2021Q4

REPORT INFORMATION
  Report Type: Spontaneous
  Country: US (occurrence: US)
  Receive Date: 20100301
  Receipt Date: 20211201
  Transmission Date: 20220303
  Serious: Yes (Death)
  Sender: FDA-Public Use
  Company Number: CHPA2010US03684

PATIENT
  Age: 58 Year
  Sex: Male

DRUGS (5)
  1. ACETAMINOPHEN\DIPHENHYDRAMINE HYDROCHLORIDE [Suspect]
     Active Substance: ACETAMINOPHEN\DIPHENHYDRAMINE HYDROCHLORIDE
     Indication: Accidental exposure to product
     Dosage: UNK
     Route: 048
  2. GLYPHOSATE [Suspect]
     Active Substance: GLYPHOSATE
     Indication: Accidental exposure to product
     Dosage: UNK
     Route: 048
  3. ACETAMINOPHEN\OPIUM [Suspect]
     Active Substance: ACETAMINOPHEN\OPIUM
     Indication: Accidental exposure to product
     Dosage: UNK
     Route: 048
  4. IBUPROFEN [Suspect]
     Active Substance: IBUPROFEN
     Indication: Accidental exposure to product
     Dosage: UNK
     Route: 048
  5. SIMVASTATIN [Suspect]
     Active Substance: SIMVASTATIN
     Indication: Accidental exposure to product
     Dosage: UNK
     Route: 048

REACTIONS (2)
  - Accidental exposure to product [Fatal]
  - Toxicity to various agents [Fatal]
